FAERS Safety Report 24247995 (Version 1)
Quarter: 2024Q3

REPORT INFORMATION
  Report Type: Spontaneous
  Country: FR (occurrence: FR)
  Receive Date: 20240826
  Receipt Date: 20240826
  Transmission Date: 20241017
  Serious: Yes (Life-Threatening, Hospitalization, Other)
  Sender: JOHNSON AND JOHNSON
  Company Number: None

PATIENT
  Age: 86 Year
  Sex: Male
  Weight: 65 kg

DRUGS (1)
  1. DARZALEX [Suspect]
     Active Substance: DARATUMUMAB
     Indication: Plasma cell myeloma
     Route: 065

REACTIONS (3)
  - Osteonecrosis [Not Recovered/Not Resolved]
  - Respiratory distress [Not Recovered/Not Resolved]
  - Tracheostomy [Recovered/Resolved with Sequelae]

NARRATIVE: CASE EVENT DATE: 20240401
